FAERS Safety Report 4750386-3 (Version None)
Quarter: 2005Q3

REPORT INFORMATION
  Report Type: 
  Country: None (occurrence: None)
  Receive Date: 20050818
  Receipt Date: 20050810
  Transmission Date: 20060218
  Serious: Yes (Other)
  Sender: FDA-Public Use
  Company Number: 2005-08-0679

PATIENT
  Age: 67 Year
  Sex: Male
  Weight: 80 kg

DRUGS (4)
  1. PEG-INTRON [Suspect]
     Indication: HEPATITIS C
     Dosage: 60 MCG QW SUBCUTANEOUS
     Route: 058
     Dates: start: 20041213, end: 20050814
  2. REBETOL [Suspect]
     Indication: HEPATITIS C
     Dosage: 200 MG ORAL
     Route: 048
     Dates: start: 20041213, end: 20050810
  3. VOLTAREN [Suspect]
     Dosage: 5 MG ORAL
     Route: 048
     Dates: start: 20041213, end: 20050810
  4. LANSOPRAZOLE [Concomitant]

REACTIONS (2)
  - GASTRODUODENITIS [None]
  - OESOPHAGITIS [None]
